FAERS Safety Report 20587262 (Version 1)
Quarter: 2022Q1

REPORT INFORMATION
  Report Type: Spontaneous
  Country: TR (occurrence: TR)
  Receive Date: 20220314
  Receipt Date: 20220314
  Transmission Date: 20220423
  Serious: Yes (Hospitalization, Other)
  Sender: FDA-Public Use
  Company Number: TR-RISINGPHARMA-TR-2022RISLIT00254

PATIENT
  Age: 29 Year
  Sex: Female
  Weight: 78 kg

DRUGS (10)
  1. LIDOCAINE HYDROCHLORIDE [Suspect]
     Active Substance: LIDOCAINE HYDROCHLORIDE
     Indication: Anaesthesia
     Dosage: 60 MG, 3ML 2PERCENT
     Route: 008
  2. LIDOCAINE HYDROCHLORIDE [Suspect]
     Active Substance: LIDOCAINE HYDROCHLORIDE
     Dosage: 2 ML OF 2 PERCENT
     Route: 008
  3. EPINEPHRINE [Suspect]
     Active Substance: EPINEPHRINE
     Indication: Product used for unknown indication
     Dosage: 5 MCG 1:200000
     Route: 008
  4. FENTANYL [Suspect]
     Active Substance: FENTANYL
     Indication: Epidural analgesia
     Dosage: 50 MCG
     Route: 008
  5. FENTANYL [Suspect]
     Active Substance: FENTANYL
     Dosage: 100 MCG
     Route: 008
  6. BUPIVACAINE [Suspect]
     Active Substance: BUPIVACAINE
     Indication: Epidural analgesia
     Dosage: 0.25%
     Route: 008
  7. BUPIVACAINE [Suspect]
     Active Substance: BUPIVACAINE
     Dosage: 20 ML
     Route: 008
  8. ALBUMIN HUMAN [Suspect]
     Active Substance: ALBUMIN HUMAN
     Indication: Product used for unknown indication
     Route: 008
  9. ALBUMIN HUMAN [Suspect]
     Active Substance: ALBUMIN HUMAN
     Route: 008
  10. SODIUM CHLORIDE [Suspect]
     Active Substance: SODIUM CHLORIDE
     Indication: Fluid replacement
     Route: 065

REACTIONS (2)
  - Horner^s syndrome [Recovered/Resolved]
  - Maternal exposure during pregnancy [Unknown]
